FAERS Safety Report 7666147 (Version 16)
Quarter: 2021Q3

REPORT INFORMATION
  Report Type: Report from Study
  Country: CA (occurrence: CA)
  Receive Date: 20101112
  Receipt Date: 20210813
  Transmission Date: 20211014
  Serious: Yes (Hospitalization, Other)
  Sender: FDA-Public Use
  Company Number: PHHY2010CA75140

PATIENT
  Age: 46 Year
  Sex: Female

DRUGS (3)
  1. SANDOSTATIN LAR DEPOT [Suspect]
     Active Substance: OCTREOTIDE ACETATE
     Dosage: 30 MG, QMO
     Route: 030
     Dates: start: 20030501
  2. SANDOSTATIN LAR DEPOT [Suspect]
     Active Substance: OCTREOTIDE ACETATE
     Dosage: 30 MG, QMO
     Route: 030
     Dates: start: 20121015
  3. SANDOSTATIN LAR DEPOT [Suspect]
     Active Substance: OCTREOTIDE ACETATE
     Indication: PANCREATITIS CHRONIC
     Dosage: 20 MG, QMO
     Route: 030
     Dates: start: 20030501, end: 20120909

REACTIONS (21)
  - Vomiting [Unknown]
  - Dyspepsia [Unknown]
  - Productive cough [Unknown]
  - Insomnia [Unknown]
  - Pancreatic duct obstruction [Unknown]
  - Rhinorrhoea [Unknown]
  - Drug hypersensitivity [Unknown]
  - Nasal congestion [Unknown]
  - Poor quality sleep [Unknown]
  - Nasopharyngitis [Unknown]
  - Blood pressure increased [Unknown]
  - Vomiting projectile [Unknown]
  - Product use in unapproved indication [Unknown]
  - Pancreatic cyst [Unknown]
  - Nausea [Unknown]
  - Pain [Unknown]
  - Headache [Unknown]
  - Abdominal pain [Unknown]
  - Pancreatitis relapsing [Recovering/Resolving]
  - Eating disorder [Unknown]
  - Diarrhoea [Unknown]

NARRATIVE: CASE EVENT DATE: 20030501
